FAERS Safety Report 4904073-9 (Version None)
Quarter: 2006Q1

REPORT INFORMATION
  Report Type: 
  Country: None (occurrence: None)
  Receive Date: 20060208
  Receipt Date: 20040706
  Transmission Date: 20060701
  Serious: No
  Sender: FDA-Public Use
  Company Number: US-GLAXOSMITHKLINE-A0519632A

PATIENT
  Sex: Female

DRUGS (2)
  1. PAXIL [Suspect]
     Indication: ANXIETY
  2. REMERON [Concomitant]
     Indication: ANXIETY

REACTIONS (4)
  - DRUG WITHDRAWAL SYNDROME [None]
  - HEADACHE [None]
  - NERVOUSNESS [None]
  - PARAESTHESIA [None]
